FAERS Safety Report 7092668-9 (Version None)
Quarter: 2010Q4

REPORT INFORMATION
  Report Type: 
  Country: None (occurrence: None)
  Receive Date: 20101110
  Receipt Date: 20101029
  Transmission Date: 20110411
  Serious: Yes (Hospitalization, Other)
  Sender: FDA-Public Use
  Company Number: US-JNJFOC-20100805712

PATIENT

DRUGS (1)
  1. LEVAQUIN [Suspect]
     Indication: SINUSITIS
     Route: 048

REACTIONS (5)
  - HYPOAESTHESIA [None]
  - HYPOKINESIA [None]
  - LIGAMENT RUPTURE [None]
  - NERVE INJURY [None]
  - TENDON RUPTURE [None]
